FAERS Safety Report 5313144-7 (Version None)
Quarter: 2007Q2

REPORT INFORMATION
  Report Type: 
  Country: None (occurrence: None)
  Receive Date: 20070424
  Receipt Date: 20070409
  Transmission Date: 20071010
  Serious: Yes (Hospitalization, Disabling)
  Sender: FDA-Public Use
  Company Number: 2007000326

PATIENT
  Age: 60 Year
  Sex: Male
  Weight: 69.9 kg

DRUGS (10)
  1. ERLOTINIB (TABLET) [Suspect]
     Indication: NON-SMALL CELL LUNG CANCER
     Dosage: 150 MG (QD), ORAL
     Route: 048
     Dates: start: 20070110
  2. BEVACIZUMAB OR PLACEBO (INJECTION FOR INFUSION) [Suspect]
     Indication: NON-SMALL CELL LUNG CANCER
     Dosage: 1140 MG (Q3W), INTRAVENOUS
     Route: 042
     Dates: start: 20070110
  3. BEVACIZUMAB OR PLACEBO (INJECTION FOR INFUSION) [Suspect]
  4. BEVACIZUMAB OR PLACEBO (INJECTION FOR INFUSION) [Suspect]
  5. GABAPENTIN [Concomitant]
  6. ALBUTEROL [Concomitant]
  7. ZOLOFT [Concomitant]
  8. ATIVAN [Concomitant]
  9. TUSSIONEX [Concomitant]
  10. MARINOL [Concomitant]

REACTIONS (4)
  - FALL [None]
  - ORAL INTAKE REDUCED [None]
  - PAIN [None]
  - PULMONARY EMBOLISM [None]
